FAERS Safety Report 13588823 (Version 2)
Quarter: 2017Q2

REPORT INFORMATION
  Report Type: Spontaneous
  Country: GB (occurrence: GB)
  Receive Date: 20170529
  Receipt Date: 20170530
  Transmission Date: 20170830
  Serious: Yes (Other)
  Sender: FDA-Public Use
  Company Number: GB-SUN PHARMACEUTICAL INDUSTRIES LTD-2017RR-141500

PATIENT
  Age: 35 Year
  Sex: Male
  Weight: 96 kg

DRUGS (2)
  1. CIALIS [Concomitant]
     Active Substance: TADALAFIL
     Indication: PRODUCT USED FOR UNKNOWN INDICATION
     Route: 065
  2. TAMSULOSIN [Suspect]
     Active Substance: TAMSULOSIN
     Indication: PROSTATITIS
     Dosage: 1 DF, UNK
     Route: 048
     Dates: start: 20160601

REACTIONS (2)
  - Photosensitivity reaction [Recovering/Resolving]
  - Sunburn [Recovering/Resolving]

NARRATIVE: CASE EVENT DATE: 20170428
